FAERS Safety Report 21477536 (Version 2)
Quarter: 2023Q2

REPORT INFORMATION
  Report Type: Spontaneous
  Country: JP (occurrence: JP)
  Receive Date: 20221019
  Receipt Date: 20230518
  Transmission Date: 20230721
  Serious: Yes (Other)
  Sender: FDA-Public Use
  Company Number: JP-JNJFOC-20221030477

PATIENT
  Age: 4 Decade
  Sex: Male

DRUGS (3)
  1. OPSUMIT [Suspect]
     Active Substance: MACITENTAN
     Indication: Multiple organ dysfunction syndrome
     Route: 048
     Dates: end: 20220920
  2. TADALAFIL [Suspect]
     Active Substance: TADALAFIL
     Dosage: DOSE UNKNOWN
     Route: 048
  3. ASPIRIN [Concomitant]
     Active Substance: ASPIRIN
     Dosage: DOSE UNKNOWN
     Route: 048

REACTIONS (3)
  - Small intestinal haemorrhage [Unknown]
  - Anaemia [Recovering/Resolving]
  - Off label use [Unknown]
